FAERS Safety Report 8803525 (Version 2)
Quarter: 2012Q4

REPORT INFORMATION
  Report Type: 
  Country: US (occurrence: US)
  Receive Date: 20120924
  Receipt Date: 20121130
  Transmission Date: 20130627
  Serious: Yes (Other)
  Sender: FDA-Public Use
  Company Number: US-AMGEN-USASP2012060042

PATIENT

DRUGS (1)
  1. ENBREL [Suspect]
     Dosage: 50 mg, qwk
     Route: 064

REACTIONS (2)
  - Syndactyly [Unknown]
  - Multiple congenital abnormalities [Unknown]
